FAERS Safety Report 10349485 (Version 1)
Quarter: 2014Q3

REPORT INFORMATION
  Report Type: Spontaneous
  Country: US (occurrence: None)
  Receive Date: 20140728
  Receipt Date: 20140728
  Transmission Date: 20150326
  Serious: Yes (Other)
  Sender: FDA-Public Use
  Company Number: None

PATIENT
  Sex: Female
  Weight: 58.97 kg

DRUGS (1)
  1. OXSORALEN-ULTRA [Suspect]
     Active Substance: METHOXSALEN
     Indication: ERYTHEMA
     Dosage: 2 CAPSULES 1 HOUR BEFORE TREATMENT
     Dates: start: 20140516

REACTIONS (2)
  - Drug ineffective [None]
  - Product substitution issue [None]
